FAERS Safety Report 10874971 (Version 1)
Quarter: 2015Q1

REPORT INFORMATION
  Report Type: Spontaneous
  Country: US (occurrence: US)
  Receive Date: 20150227
  Receipt Date: 20150227
  Transmission Date: 20150721
  Serious: Yes (Death)
  Sender: FDA-Public Use
  Company Number: US-WATSON-2015-03362

PATIENT
  Age: 60 Year
  Sex: Male

DRUGS (3)
  1. HYDROCODONE-ACETAMINOPHEN (WATSON LABORATORIES) [Suspect]
     Active Substance: ACETAMINOPHEN\HYDROCODONE
     Indication: PRODUCT USED FOR UNKNOWN INDICATION
     Dosage: UNKNOWN
     Route: 048
  2. CARISOPRODOL (WATSON LABORATORIES) (CARISOPRODOL) UNK, UNKUNK [Suspect]
     Active Substance: CARISOPRODOL
     Indication: PRODUCT USED FOR UNKNOWN INDICATION
     Dosage: UNKNOWN
     Route: 048
  3. TRAZODONE HYDROCHLORIDE (WATSON LABORATORIES) [Suspect]
     Active Substance: TRAZODONE HYDROCHLORIDE
     Indication: PRODUCT USED FOR UNKNOWN INDICATION
     Dosage: UNKNOWN
     Route: 048

REACTIONS (5)
  - Completed suicide [Fatal]
  - Exposure via ingestion [None]
  - Toxicity to various agents [Fatal]
  - Cardiac arrest [None]
  - Respiratory arrest [None]
